FAERS Safety Report 8347594-1 (Version None)
Quarter: 2012Q2

REPORT INFORMATION
  Report Type: 
  Country: None (occurrence: None)
  Receive Date: 20120509
  Receipt Date: 20120430
  Transmission Date: 20120825
  Serious: Yes (Other)
  Sender: FDA-Public Use
  Company Number: US-ASTRAZENECA-2012SE02767

PATIENT
  Age: 61 Year
  Sex: Female
  Weight: 68 kg

DRUGS (5)
  1. NEXIUM [Suspect]
     Indication: GASTROOESOPHAGEAL REFLUX DISEASE
     Route: 048
     Dates: start: 20110101
  2. NEXIUM [Suspect]
     Route: 048
  3. CHOLESTEROL MEDICATION [Concomitant]
     Indication: BLOOD CHOLESTEROL INCREASED
  4. INHALER FOR HER BREATHING [Concomitant]
     Indication: DYSPNOEA
  5. NERVES MEDICATION [Concomitant]
     Indication: NERVOUS SYSTEM DISORDER

REACTIONS (2)
  - CATARACT [None]
  - INTENTIONAL DRUG MISUSE [None]
